FAERS Safety Report 13825999 (Version 1)
Quarter: 2017Q3

REPORT INFORMATION
  Report Type: Spontaneous
  Country: FR (occurrence: FR)
  Receive Date: 20170802
  Receipt Date: 20170802
  Transmission Date: 20171127
  Serious: Yes (Death, Hospitalization)
  Sender: FDA-Public Use
  Company Number: FR-ALLERGAN-1732322US

PATIENT
  Age: 91 Year
  Sex: Female

DRUGS (5)
  1. NEBIVOLOL HCL - BP [Suspect]
     Active Substance: NEBIVOLOL
     Indication: HYPERTENSION
     Dosage: 5 MG, QD
     Route: 048
     Dates: end: 20170621
  2. PRAVASTATIN. [Concomitant]
     Active Substance: PRAVASTATIN
     Indication: PRODUCT USED FOR UNKNOWN INDICATION
     Dosage: 20 MG, QD
     Route: 065
  3. TANGANIL [Concomitant]
     Active Substance: ACETYLLEUCINE
     Indication: PRODUCT USED FOR UNKNOWN INDICATION
     Dosage: 500 MG, BID
     Route: 065
  4. GEZOR [Suspect]
     Active Substance: HYDROCHLOROTHIAZIDE\QUINAPRIL HYDROCHLORIDE
     Indication: HYPERTENSION
     Dosage: 20 MG/ 12.5 MG, QD
     Route: 048
     Dates: end: 20170621
  5. METEOSPAMYL [Concomitant]
     Indication: PRODUCT USED FOR UNKNOWN INDICATION
     Dosage: 900 MG / 180 MG, QD
     Route: 048

REACTIONS (9)
  - Colitis ischaemic [Unknown]
  - Renal failure [Recovered/Resolved]
  - Haemodynamic instability [Unknown]
  - Lactic acidosis [Unknown]
  - Dehydration [Fatal]
  - Head injury [Recovered/Resolved]
  - Metabolic acidosis [Unknown]
  - Acute kidney injury [Fatal]
  - Hypotension [Fatal]

NARRATIVE: CASE EVENT DATE: 20170502
